FAERS Safety Report 4886090-0 (Version None)
Quarter: 2006Q1

REPORT INFORMATION
  Report Type: 
  Country: None (occurrence: None)
  Receive Date: 20060120
  Receipt Date: 20060112
  Transmission Date: 20060701
  Serious: Yes (Other)
  Sender: FDA-Public Use
  Company Number: JP-AVENTIS-200610434GDDC

PATIENT
  Age: 53 Year
  Sex: Male

DRUGS (3)
  1. DOCETAXEL [Suspect]
     Indication: MESOTHELIOMA MALIGNANT
     Route: 042
  2. CISPLATIN [Suspect]
     Indication: MESOTHELIOMA MALIGNANT
     Route: 042
  3. RADIATION THERAPY [Suspect]
     Indication: MESOTHELIOMA MALIGNANT
     Dosage: DOSE: 40 GY

REACTIONS (1)
  - RENAL DISORDER [None]
